FAERS Safety Report 8807239 (Version 3)
Quarter: 2012Q4

REPORT INFORMATION
  Report Type: 
  Country: US (occurrence: US)
  Receive Date: 20120925
  Receipt Date: 20121113
  Transmission Date: 20130627
  Serious: Yes (Hospitalization, Other)
  Sender: FDA-Public Use
  Company Number: US-ASTRAZENECA-2012SE72407

PATIENT
  Age: 84 Year
  Sex: Female
  Weight: 72.1 kg

DRUGS (5)
  1. NEXIUM [Suspect]
     Indication: GASTROOESOPHAGEAL REFLUX DISEASE
     Route: 048
  2. LISINOPRIL [Suspect]
     Indication: HYPERTENSION
     Route: 048
  3. METOPROLOL [Suspect]
     Indication: HYPERTENSION
     Route: 048
  4. NORVASC [Concomitant]
     Indication: HYPERTENSION
     Route: 048
  5. FLORASTOC [Concomitant]
     Route: 048

REACTIONS (11)
  - Clostridium difficile colitis [Not Recovered/Not Resolved]
  - Pyuria [Unknown]
  - Enterococcal infection [Unknown]
  - Sepsis [Unknown]
  - Renal failure chronic [Unknown]
  - Fall [Unknown]
  - Asthenia [Unknown]
  - Renal disorder [Unknown]
  - Type 2 diabetes mellitus [Unknown]
  - Skin ulcer [Unknown]
  - Rash [Unknown]
